FAERS Safety Report 7405648-8 (Version None)
Quarter: 2011Q2

REPORT INFORMATION
  Report Type: 
  Country: None (occurrence: None)
  Receive Date: 20110406
  Receipt Date: 20110406
  Transmission Date: 20111010
  Serious: Yes (Life-Threatening)
  Sender: FDA-Public Use
  Company Number: None

PATIENT
  Age: 73 Year
  Sex: Male
  Weight: 120.2032 kg

DRUGS (1)
  1. CELEBREX [Suspect]

REACTIONS (6)
  - PALPITATIONS [None]
  - WRONG DRUG ADMINISTERED [None]
  - HEADACHE [None]
  - MEDICATION ERROR [None]
  - DYSPNOEA [None]
  - CONFUSIONAL STATE [None]
